FAERS Safety Report 4953760-5 (Version None)
Quarter: 2006Q1

REPORT INFORMATION
  Report Type: 
  Country: None (occurrence: None)
  Receive Date: 20060323
  Receipt Date: 20060323
  Transmission Date: 20060701
  Serious: Yes (Life-Threatening, Hospitalization)
  Sender: FDA-Public Use
  Company Number: None

PATIENT
  Age: 58 Year
  Sex: Female
  Weight: 49.4421 kg

DRUGS (2)
  1. RITUXIMAB [Suspect]
     Indication: IDIOPATHIC THROMBOCYTOPENIC PURPURA
     Dosage: 550 MG   Q WEEK X 2    IV BOLUS
     Route: 040
     Dates: start: 20050914, end: 20050914
  2. RITUXIMAB [Suspect]
     Indication: IDIOPATHIC THROMBOCYTOPENIC PURPURA
     Dosage: 550 MG   Q WEEK X 2    IV BOLUS
     Route: 040
     Dates: start: 20050921, end: 20050921

REACTIONS (2)
  - CARDIOMYOPATHY [None]
  - VIRAL INFECTION [None]
